FAERS Safety Report 4760999-0 (Version None)
Quarter: 2005Q3

REPORT INFORMATION
  Report Type: 
  Country: None (occurrence: None)
  Receive Date: 20050901
  Receipt Date: 20050822
  Transmission Date: 20060218
  Serious: Yes (Hospitalization)
  Sender: FDA-Public Use
  Company Number: S05-USA-04085-01

PATIENT
  Age: 15 Year
  Sex: Female

DRUGS (1)
  1. CELEXA [Suspect]
     Indication: DEPRESSION
     Dates: start: 20001101, end: 20020701

REACTIONS (7)
  - AGGRESSION [None]
  - DISSOCIATIVE IDENTITY DISORDER [None]
  - HALLUCINATIONS, MIXED [None]
  - INTENTIONAL SELF-INJURY [None]
  - LACERATION [None]
  - PARANOIA [None]
  - THERMAL BURN [None]
